FAERS Safety Report 6456694-2 (Version None)
Quarter: 2009Q4

REPORT INFORMATION
  Report Type: 
  Country: None (occurrence: None)
  Receive Date: 20091120
  Receipt Date: 20091110
  Transmission Date: 20100525
  Serious: Yes (Other)
  Sender: FDA-Public Use
  Company Number: 394105

PATIENT
  Age: 40 Year
  Sex: Male
  Weight: 81.6475 kg

DRUGS (2)
  1. CARBOCAINE [Suspect]
     Indication: DRUG USE FOR UNKNOWN INDICATION
     Dosage: FREQUENCY ONCE, INJECTION
     Dates: start: 20090901, end: 20090901
  2. (ALL OTHER THERAPEUTIC PRODUCTS) [Concomitant]

REACTIONS (5)
  - APHASIA [None]
  - HYPERSENSITIVITY [None]
  - MUSCULOSKELETAL DISORDER [None]
  - POST PROCEDURAL COMPLICATION [None]
  - SYNCOPE [None]
